FAERS Safety Report 22530418 (Version 1)
Quarter: 2023Q2

REPORT INFORMATION
  Report Type: Spontaneous
  Country: BR (occurrence: BR)
  Receive Date: 20230607
  Receipt Date: 20230607
  Transmission Date: 20230722
  Serious: Yes (Hospitalization, Other)
  Sender: FDA-Public Use
  Company Number: BR-AMERICAN REGENT INC-2023001293

PATIENT
  Age: 39 Year
  Sex: Female
  Weight: 68 kg

DRUGS (4)
  1. VENOFER [Suspect]
     Active Substance: IRON SUCROSE
     Indication: Iron deficiency
     Dosage: FIRST DOSE (200 MG,1 IN 1 WK)
     Dates: start: 202304, end: 202304
  2. VENOFER [Suspect]
     Active Substance: IRON SUCROSE
     Dosage: SECOND DOSE (200 MG,1 IN 1 WK)
     Dates: start: 202304, end: 202304
  3. VENOFER [Suspect]
     Active Substance: IRON SUCROSE
     Dosage: THIRD DOSE (200 MG,1 IN 1 WK)
     Dates: start: 202304, end: 202304
  4. VENOFER [Suspect]
     Active Substance: IRON SUCROSE
     Dosage: FOURTH ADMINISTRATION (200 MG,1 IN 1 WK)
     Dates: start: 20230503, end: 20230503

REACTIONS (2)
  - Sepsis [Recovered/Resolved]
  - Suspected product contamination [Unknown]

NARRATIVE: CASE EVENT DATE: 20230503
